FAERS Safety Report 21970502 (Version 1)
Quarter: 2023Q1

REPORT INFORMATION
  Report Type: Report from Study
  Country: US (occurrence: US)
  Receive Date: 20230209
  Receipt Date: 20230209
  Transmission Date: 20230418
  Serious: Yes (Other)
  Sender: FDA-Public Use
  Company Number: US-REGENERON PHARMACEUTICALS, INC.-2023-025768

PATIENT
  Sex: Female

DRUGS (1)
  1. EYLEA [Suspect]
     Active Substance: AFLIBERCEPT
     Indication: Product used for unknown indication
     Dosage: 2MG, EVERY 4 WEEKS, ON THE RIGHT EYE, FORMULATION: PFS UNKNOWN; STRENGTH: 2MG/0.05ML

REACTIONS (1)
  - Blindness transient [Recovered/Resolved]
